FAERS Safety Report 14869438 (Version 1)
Quarter: 2018Q2

REPORT INFORMATION
  Report Type: Spontaneous
  Country: US (occurrence: US)
  Receive Date: 20180509
  Receipt Date: 20180509
  Transmission Date: 20180711
  Serious: No
  Sender: FDA-Public Use
  Company Number: US-MYLANLABS-2018M1020282

PATIENT
  Age: 22 Year
  Sex: Male
  Weight: 97.51 kg

DRUGS (3)
  1. AMLODIPINE [Concomitant]
     Active Substance: AMLODIPINE BESYLATE
     Indication: MAST CELL ACTIVATION SYNDROME
     Dosage: UNK
  2. GASTROCROM [Suspect]
     Active Substance: CROMOLYN SODIUM
     Indication: MAST CELL ACTIVATION SYNDROME
     Dosage: 1 AMPULE SOLUTION, BID
     Route: 048
     Dates: start: 20180317, end: 20180317
  3. RANITIDINE. [Concomitant]
     Active Substance: RANITIDINE
     Indication: MAST CELL ACTIVATION SYNDROME
     Dosage: UNK

REACTIONS (3)
  - Rash generalised [Recovered/Resolved]
  - Flushing [Recovered/Resolved]
  - Skin disorder [Recovered/Resolved]

NARRATIVE: CASE EVENT DATE: 20180317
